FAERS Safety Report 9549699 (Version 1)
Quarter: 2013Q3

REPORT INFORMATION
  Report Type: Spontaneous
  Country: GB (occurrence: GB)
  Receive Date: 20130924
  Receipt Date: 20130924
  Transmission Date: 20140515
  Serious: Yes (Life-Threatening, Other)
  Sender: FDA-Public Use
  Company Number: GB-TEVA-415835ISR

PATIENT
  Age: 19 Year
  Sex: Female
  Weight: 64 kg

DRUGS (2)
  1. MODAFINIL [Suspect]
     Indication: NARCOLEPSY
     Dosage: 200 MILLIGRAM DAILY;
     Route: 048
     Dates: start: 20130518
  2. MICROGYNON [Concomitant]
     Indication: CONTRACEPTION
     Dosage: 1 DOSAGE FORMS DAILY; LONG-TERM
     Route: 048

REACTIONS (1)
  - Anaphylactic reaction [Recovered/Resolved]
